FAERS Safety Report 15471454 (Version 1)
Quarter: 2018Q4

REPORT INFORMATION
  Report Type: Spontaneous
  Country: JP (occurrence: JP)
  Receive Date: 20181007
  Receipt Date: 20181007
  Transmission Date: 20190205
  Serious: Yes (Hospitalization)
  Sender: FDA-Public Use
  Company Number: JP-TEVA-2018-JP-003208J

PATIENT
  Age: 76 Year
  Sex: Female

DRUGS (2)
  1. FUROSEMIDE INJECTION 20MG ^TEVA^ [Suspect]
     Active Substance: FUROSEMIDE
     Indication: PRODUCT USED FOR UNKNOWN INDICATION
     Route: 065
     Dates: start: 201301, end: 201302
  2. BROMHEXINE HYDROCHLORIDE INJECTION 4MG ^TAIYO^ [Suspect]
     Active Substance: BROMHEXINE HYDROCHLORIDE
     Indication: PRODUCT USED FOR UNKNOWN INDICATION
     Route: 065
     Dates: start: 201301, end: 201302

REACTIONS (1)
  - Drug eruption [Unknown]
